FAERS Safety Report 23539516 (Version 1)
Quarter: 2024Q1

REPORT INFORMATION
  Report Type: Report from Study
  Country: DE (occurrence: DE)
  Receive Date: 20240219
  Receipt Date: 20240219
  Transmission Date: 20240409
  Serious: Yes (Hospitalization)
  Sender: FDA-Public Use
  Company Number: DE-BEH-2024167492

PATIENT
  Age: 71 Year
  Sex: Female
  Weight: 50 kg

DRUGS (5)
  1. PRIVIGEN [Suspect]
     Active Substance: HUMAN IMMUNOGLOBULIN G
     Indication: Waldenstrom^s macroglobulinaemia
     Dosage: UNK, TOT
     Route: 042
  2. PREDNISOLONE [Concomitant]
     Active Substance: PREDNISOLONE
  3. PANTOPRAZOLE [Concomitant]
     Active Substance: PANTOPRAZOLE
  4. VITAMIN D NOS [Concomitant]
     Active Substance: VITAMIN D NOS
  5. IBUPROFEN [Concomitant]
     Active Substance: IBUPROFEN

REACTIONS (5)
  - Hypercalcaemia [Unknown]
  - General physical health deterioration [Unknown]
  - Decreased appetite [Unknown]
  - Nausea [Unknown]
  - Bursitis [Unknown]

NARRATIVE: CASE EVENT DATE: 20230919
